FAERS Safety Report 25341873 (Version 1)
Quarter: 2025Q2

REPORT INFORMATION
  Report Type: Spontaneous
  Country: US (occurrence: None)
  Receive Date: 20250520
  Receipt Date: 20250520
  Transmission Date: 20250717
  Serious: Yes (Life-Threatening, Hospitalization)
  Sender: FDA-CTU
  Company Number: None

PATIENT
  Age: 56 Year
  Sex: Female
  Weight: 126 kg

DRUGS (4)
  1. JARDIANCE [Suspect]
     Active Substance: EMPAGLIFLOZIN
     Indication: Diabetes mellitus
     Dates: end: 20250125
  2. nateglinde [Concomitant]
  3. Junavia [Concomitant]
  4. 50 plus vitamins [Concomitant]

REACTIONS (10)
  - Musculoskeletal pain [None]
  - Skin discolouration [None]
  - Illness [None]
  - Pyrexia [None]
  - Pain [None]
  - Lymphadenopathy [None]
  - Emergency care [None]
  - Surgery [None]
  - Dysstasia [None]
  - Adverse drug reaction [None]

NARRATIVE: CASE EVENT DATE: 20250121
